FAERS Safety Report 9719162 (Version 2)
Quarter: 2013Q4

REPORT INFORMATION
  Report Type: Report from Study
  Country: JP (occurrence: JP)
  Receive Date: 20131127
  Receipt Date: 20131203
  Transmission Date: 20140711
  Serious: Yes (Other)
  Sender: FDA-Public Use
  Company Number: PHHY2013JP132297

PATIENT
  Age: 73 Year
  Sex: 0

DRUGS (2)
  1. GLIVEC [Suspect]
     Indication: CHRONIC MYELOID LEUKAEMIA
     Dosage: 400 MG, DAILY
     Route: 048
     Dates: start: 200112, end: 20091201
  2. NO TREATMENT RECEIVED [Suspect]
     Dosage: UNK UKN, UNK

REACTIONS (1)
  - Gastrointestinal haemorrhage [Recovering/Resolving]
